FAERS Safety Report 8889211 (Version 2)
Quarter: 2013Q4

REPORT INFORMATION
  Report Type: Spontaneous
  Country: US (occurrence: US)
  Receive Date: 20121106
  Receipt Date: 20131004
  Transmission Date: 20140711
  Serious: Yes (Hospitalization, Other)
  Sender: FDA-Public Use
  Company Number: US-009507513-2006-150706-NL

PATIENT
  Sex: Female

DRUGS (4)
  1. NUVARING [Suspect]
     Indication: CONTRACEPTION
     Dosage: 1 DF, UNK
     Route: 067
     Dates: start: 20041102, end: 20061022
  2. HORMONAL CONTRACEPTIVES (UNSPECIFIED) [Suspect]
     Indication: CONTRACEPTION
  3. DEPO-PROVERA [Suspect]
     Indication: CONTRACEPTION
     Dates: start: 20060321
  4. IBUPROFEN [Concomitant]
     Indication: PRODUCT USED FOR UNKNOWN INDICATION
     Dosage: 800 MG, PRN

REACTIONS (13)
  - Loss of consciousness [Unknown]
  - Pulmonary embolism [Recovering/Resolving]
  - Phlebitis superficial [Recovering/Resolving]
  - Pain [Unknown]
  - Discomfort [Unknown]
  - Hepatic enzyme increased [Unknown]
  - Musculoskeletal pain [Unknown]
  - Urinary tract infection [Unknown]
  - Menstruation irregular [Unknown]
  - Abdominal pain [Not Recovered/Not Resolved]
  - Thrombosis [Unknown]
  - Coagulation time prolonged [Unknown]
  - Anticoagulation drug level below therapeutic [Unknown]
